FAERS Safety Report 24874003 (Version 1)
Quarter: 2025Q1

REPORT INFORMATION
  Report Type: Spontaneous
  Country: US (occurrence: None)
  Receive Date: 20250121
  Receipt Date: 20250121
  Transmission Date: 20250409
  Serious: Yes (Other)
  Sender: FDA-CTU
  Company Number: None

PATIENT
  Age: 43 Year
  Sex: Female

DRUGS (4)
  1. NEXTSTELLIS [Suspect]
     Active Substance: DROSPIRENONE\ESTETROL MONOHYDRATE
     Indication: Menopause
     Dates: start: 20250113, end: 20250119
  2. Lions Mane [Concomitant]
  3. VITAMINS [Concomitant]
     Active Substance: VITAMINS
  4. PROBIOTICS NOS [Concomitant]
     Active Substance: PROBIOTICS NOS

REACTIONS (7)
  - Palpitations [None]
  - Dyspnoea [None]
  - Insomnia [None]
  - Negative thoughts [None]
  - Crying [None]
  - Loss of personal independence in daily activities [None]
  - Migraine [None]

NARRATIVE: CASE EVENT DATE: 20250119
